FAERS Safety Report 13818933 (Version 1)
Quarter: 2017Q3

REPORT INFORMATION
  Report Type: Report from Study
  Country: US (occurrence: US)
  Receive Date: 20170731
  Receipt Date: 20170731
  Transmission Date: 20171127
  Serious: No
  Sender: FDA-Public Use
  Company Number: US-EXELIXIS-CABO-17007995

PATIENT
  Age: 54 Year
  Sex: Female

DRUGS (11)
  1. CELEBREX [Concomitant]
     Active Substance: CELECOXIB
  2. CALTRATE WITH VITAMIN D [Concomitant]
     Active Substance: CALCIUM CARBONATE\CHOLECALCIFEROL
  3. CABOMETYX [Suspect]
     Active Substance: CABOZANTINIB S-MALATE
     Indication: RENAL CANCER
     Dosage: 60 MG, QD
     Route: 048
     Dates: start: 20161222
  4. XARELTO [Concomitant]
     Active Substance: RIVAROXABAN
  5. LEVOTHYROXINE. [Concomitant]
     Active Substance: LEVOTHYROXINE
  6. ZOFRAN [Concomitant]
     Active Substance: ONDANSETRON HYDROCHLORIDE
  7. BACLOFEN. [Concomitant]
     Active Substance: BACLOFEN
  8. L-CARNITINE [Concomitant]
     Active Substance: LEVOCARNITINE
  9. GABAPENTIN. [Concomitant]
     Active Substance: GABAPENTIN
  10. PRILOSEC [Concomitant]
     Active Substance: OMEPRAZOLE MAGNESIUM
  11. SENOKOT [Concomitant]
     Active Substance: SENNOSIDES

REACTIONS (3)
  - Haemorrhoidal haemorrhage [Unknown]
  - Blood urine [Unknown]
  - Proctalgia [Unknown]

NARRATIVE: CASE EVENT DATE: 20170114
